FAERS Safety Report 9375930 (Version 2)
Quarter: 2013Q3

REPORT INFORMATION
  Report Type: Spontaneous
  Country: US (occurrence: US)
  Receive Date: 20130628
  Receipt Date: 20130725
  Transmission Date: 20140515
  Serious: Yes (Hospitalization)
  Sender: FDA-Public Use
  Company Number: US-ASTRAZENECA-2013SE40616

PATIENT
  Age: 808 Month
  Sex: Female
  Weight: 62.6 kg

DRUGS (9)
  1. ARIMIDEX [Suspect]
     Indication: BREAST CANCER
     Route: 048
     Dates: start: 20130301, end: 201305
  2. ARIMIDEX [Suspect]
     Indication: BREAST CANCER
     Route: 048
     Dates: end: 20130612
  3. TAMOXIFEN [Suspect]
     Route: 048
  4. METOPROLOL [Suspect]
     Route: 048
     Dates: start: 201305
  5. VIT D [Concomitant]
  6. AMLODIPINE [Concomitant]
  7. BABY ASPIRIN [Concomitant]
     Dosage: DAILY
  8. LOSARTAN [Concomitant]
  9. HYDROCHLOROTHIAZIDE [Concomitant]

REACTIONS (12)
  - Blood pressure increased [Unknown]
  - Lacrimation decreased [Not Recovered/Not Resolved]
  - Dry mouth [Recovering/Resolving]
  - Throat irritation [Recovering/Resolving]
  - Saliva altered [Recovering/Resolving]
  - Stomatitis [Recovering/Resolving]
  - Oral discomfort [Recovering/Resolving]
  - Muscle spasms [Recovering/Resolving]
  - Muscle disorder [Unknown]
  - Malaise [Not Recovered/Not Resolved]
  - Hypotension [Not Recovered/Not Resolved]
  - Arthralgia [Not Recovered/Not Resolved]
